FAERS Safety Report 6684242-0 (Version None)
Quarter: 2010Q2

REPORT INFORMATION
  Report Type: 
  Country: None (occurrence: None)
  Receive Date: 20100416
  Receipt Date: 20100401
  Transmission Date: 20101027
  Serious: Yes (Hospitalization, Other)
  Sender: FDA-Public Use
  Company Number: AU-BAYER-201020542GPV

PATIENT
  Age: 63 Year
  Sex: Female
  Weight: 72 kg

DRUGS (11)
  1. SORAFENIB [Suspect]
     Indication: HEPATIC NEOPLASM MALIGNANT
     Route: 048
     Dates: start: 20100313, end: 20100318
  2. ERLOTINIB OR PLACEBO [Suspect]
     Indication: HEPATIC NEOPLASM MALIGNANT
     Route: 048
     Dates: start: 20100313, end: 20100318
  3. MIXTARD HUMAN 70/30 [Concomitant]
     Indication: TYPE 2 DIABETES MELLITUS
     Route: 058
  4. PROPRANOLOL [Concomitant]
     Indication: PORTAL HYPERTENSION
     Route: 048
  5. TRITACE [Concomitant]
     Indication: HYPERTENSION
     Route: 048
  6. MODURETIC 5-50 [Concomitant]
     Indication: HYPERTENSION
     Route: 048
  7. VYTORIN [Concomitant]
     Indication: HYPERLIPIDAEMIA
     Route: 048
  8. ALENDRATE [Concomitant]
     Indication: OSTEOPOROSIS
     Route: 048
  9. VALIUM [Concomitant]
     Indication: ANXIETY
     Route: 048
  10. FLEXOTARD [Concomitant]
     Indication: NASAL CONGESTION
     Route: 055
  11. THIAMINE HCL [Concomitant]
     Route: 048

REACTIONS (9)
  - BLOOD BILIRUBIN INCREASED [None]
  - CONFUSIONAL STATE [None]
  - ENCEPHALITIS [None]
  - GAIT DISTURBANCE [None]
  - HEPATIC ENCEPHALOPATHY [None]
  - HYPOXIA [None]
  - PRODUCTIVE COUGH [None]
  - RESPIRATORY TRACT INFECTION [None]
  - WHEEZING [None]
